FAERS Safety Report 9919406 (Version 1)
Quarter: 2014Q1

REPORT INFORMATION
  Report Type: Report from Study
  Country: US (occurrence: US)
  Receive Date: 20140224
  Receipt Date: 20140224
  Transmission Date: 20141002
  Serious: Yes (Other)
  Sender: FDA-Public Use
  Company Number: US-ELI_LILLY_AND_COMPANY-US201402003917

PATIENT
  Sex: Female

DRUGS (4)
  1. SOMATROPIN [Suspect]
     Indication: BLOOD GROWTH HORMONE
     Dosage: UNK, UNKNOWN
     Route: 065
     Dates: start: 2011
  2. CYMBALTA [Suspect]
     Indication: PRODUCT USED FOR UNKNOWN INDICATION
     Dosage: UNK, UNKNOWN
     Route: 065
  3. GABAPENTIN [Concomitant]
  4. PERCOCET [Concomitant]

REACTIONS (1)
  - Weight increased [Unknown]
